FAERS Safety Report 9990606 (Version 1)
Quarter: 2014Q1

REPORT INFORMATION
  Report Type: Report from Study
  Country: US (occurrence: US)
  Receive Date: 20140310
  Receipt Date: 20140310
  Transmission Date: 20141002
  Serious: No
  Sender: FDA-Public Use
  Company Number: US-ABBVIE-13P-163-1131345-00

PATIENT
  Age: 40 Year
  Sex: Female

DRUGS (9)
  1. HUMIRA [Suspect]
     Indication: ANKYLOSING SPONDYLITIS
     Dates: start: 201305
  2. LEXAPRO [Concomitant]
     Indication: ANXIETY
     Dosage: 10 MG BY MOUTH DAILY
  3. SINGULAIR [Concomitant]
     Indication: ASTHMA
     Dosage: 10 MG BY MOUTH DAILY
  4. SINGULAIR [Concomitant]
     Indication: HYPERSENSITIVITY
  5. VITAMIN B12 [Concomitant]
     Indication: VITAMIN B COMPLEX DEFICIENCY
     Dosage: PILL BY MOUTH DAILY
  6. ALBUTEROL [Concomitant]
     Indication: ASTHMA
  7. B12 [Concomitant]
     Indication: VITAMIN B COMPLEX DEFICIENCY
     Route: 050
  8. VITAMIN D [Concomitant]
     Indication: VITAMIN D DECREASED
     Dosage: 50000 UNITS BY MOUTH WEEKLY
  9. ULTRAM [Concomitant]
     Indication: PAIN
     Dosage: BY MOUTH

REACTIONS (4)
  - Local swelling [Not Recovered/Not Resolved]
  - Contusion [Not Recovered/Not Resolved]
  - Fall [Not Recovered/Not Resolved]
  - Myalgia [Not Recovered/Not Resolved]
